FAERS Safety Report 4641011-0 (Version None)
Quarter: 2005Q2

REPORT INFORMATION
  Report Type: 
  Country: None (occurrence: None)
  Receive Date: 20050328
  Receipt Date: 20040423
  Transmission Date: 20051028
  Serious: Yes (Hospitalization)
  Sender: FDA-Public Use
  Company Number: WAES 0404USA02124

PATIENT
  Age: 70 Year
  Sex: Female

DRUGS (11)
  1. CANCIDAS [Suspect]
     Indication: FUNGAL INFECTION
     Dosage: 50 MG/ DAILY/ IV
     Route: 042
     Dates: start: 20040417
  2. CANCIDAS [Suspect]
     Indication: PYREXIA
     Dosage: 50 MG/ DAILY/ IV
     Route: 042
     Dates: start: 20040417
  3. ALDACTONE [Concomitant]
  4. DILAUDID [Concomitant]
  5. TOPROL-XL [Concomitant]
  6. XANAX [Concomitant]
  7. ENOXAPARIN SODIUM [Concomitant]
  8. HALOPERIDOL [Concomitant]
  9. MORPHINE [Concomitant]
  10. POTASSIUM CHLORIDE [Concomitant]
  11. TIAGABINE HYDROCHLORIDE [Concomitant]

REACTIONS (1)
  - HYPERCALCAEMIA [None]
